FAERS Safety Report 9725093 (Version 1)
Quarter: 2013Q4

REPORT INFORMATION
  Report Type: Spontaneous
  Country: US (occurrence: US)
  Receive Date: 20131203
  Receipt Date: 20131203
  Transmission Date: 20140711
  Serious: No
  Sender: FDA-Public Use
  Company Number: US-BIOGENIDEC-2013BI113675

PATIENT
  Sex: Male

DRUGS (1)
  1. AVONEX [Suspect]
     Indication: MULTIPLE SCLEROSIS
     Route: 030
     Dates: start: 20001214

REACTIONS (3)
  - Trigeminal neuralgia [Recovered/Resolved]
  - Dermatitis contact [Recovered/Resolved]
  - Drug hypersensitivity [Recovered/Resolved]
